FAERS Safety Report 11164237 (Version 2)
Quarter: 2015Q2

REPORT INFORMATION
  Report Type: Report from Study
  Country: TW (occurrence: TW)
  Receive Date: 20150604
  Receipt Date: 20150608
  Transmission Date: 20150821
  Serious: Yes (Death, Hospitalization, Other)
  Sender: FDA-Public Use
  Company Number: TW-ABBVIE-15K-153-1399767-00

PATIENT
  Age: 49 Year
  Sex: Male
  Weight: 120 kg

DRUGS (2)
  1. MTX [Concomitant]
     Active Substance: METHOTREXATE SODIUM
     Indication: PSORIATIC ARTHROPATHY
     Route: 048
     Dates: start: 20090825, end: 20150509
  2. HUMIRA [Suspect]
     Active Substance: ADALIMUMAB
     Indication: PSORIATIC ARTHROPATHY
     Route: 058
     Dates: start: 20101216, end: 20150430

REACTIONS (29)
  - Rash [Fatal]
  - Acute kidney injury [Fatal]
  - Heart rate decreased [Fatal]
  - Hypertension [Fatal]
  - Chronic kidney disease [Fatal]
  - Cellulitis [Recovered/Resolved]
  - Diabetes mellitus [Unknown]
  - Haemoglobin decreased [Fatal]
  - Pulmonary mass [Fatal]
  - Diabetic nephropathy [Fatal]
  - Coronary artery disease [Fatal]
  - Splenomegaly [Fatal]
  - Cardiorenal syndrome [Fatal]
  - Acute kidney injury [Fatal]
  - Ischaemic cardiomyopathy [Fatal]
  - Generalised oedema [Fatal]
  - Dyspnoea [Fatal]
  - Polyuria [Fatal]
  - Cardiac failure congestive [Fatal]
  - Skin lesion [Fatal]
  - Nephrotic syndrome [Fatal]
  - Hepatic cirrhosis [Fatal]
  - Collateral circulation [Fatal]
  - Hepatic steatosis [Fatal]
  - Tuberculosis [Recovered/Resolved]
  - Dyspnoea [Fatal]
  - Hypoalbuminaemia [Fatal]
  - Pleural effusion [Fatal]
  - Blood pressure decreased [Fatal]

NARRATIVE: CASE EVENT DATE: 20131114
